FAERS Safety Report 8198118-3 (Version None)
Quarter: 2012Q1

REPORT INFORMATION
  Report Type: 
  Country: None (occurrence: None)
  Receive Date: 20120309
  Receipt Date: 20120302
  Transmission Date: 20120608
  Serious: Yes (Other)
  Sender: FDA-Public Use
  Company Number: US-JNJFOC-20120302161

PATIENT
  Age: 5 Decade
  Sex: Female

DRUGS (3)
  1. UNKNOWN MEDICATION [Concomitant]
     Indication: PRODUCT USED FOR UNKNOWN INDICATION
     Route: 065
  2. NUCYNTA [Suspect]
     Indication: PAIN
     Route: 065
  3. KEPPRA [Concomitant]
     Indication: CONVULSION
     Route: 065

REACTIONS (1)
  - LOSS OF CONSCIOUSNESS [None]
